FAERS Safety Report 10619981 (Version 1)
Quarter: 2014Q4

REPORT INFORMATION
  Report Type: Spontaneous
  Country: KR (occurrence: None)
  Receive Date: 20141128
  Receipt Date: 20141128
  Transmission Date: 20150529
  Serious: Yes (Death)
  Sender: FDA-Public Use
  Company Number: 2632097

PATIENT
  Age: 75 Year
  Sex: Female
  Weight: 44 kg

DRUGS (7)
  1. ROCURONIUM BROMIDE. [Suspect]
     Active Substance: ROCURONIUM BROMIDE
     Indication: INDUCTION OF ANAESTHESIA
  2. DESFLURANE. [Suspect]
     Active Substance: DESFLURANE
     Indication: MAINTENANCE OF ANAESTHESIA
     Dosage: RESPIRTAORY
     Route: 055
  3. GLYCOPYRROLATE. [Concomitant]
     Active Substance: GLYCOPYRROLATE
  4. PHENYLEPHRINE [Concomitant]
     Active Substance: PHENYLEPHRINE\PHENYLEPHRINE HYDROCHLORIDE
  5. REMIFENTANIL [Suspect]
     Active Substance: REMIFENTANIL
     Indication: INDUCTION OF ANAESTHESIA
     Dosage: 0.05 MCG/KG/MIN, UKNOWN, UKNOWN
     Route: 041
  6. REMIFENTANIL [Suspect]
     Active Substance: REMIFENTANIL
     Indication: MAINTENANCE OF ANAESTHESIA
     Dosage: 0.05 MCG/KG/MIN, UKNOWN, UKNOWN
     Route: 041
  7. PENTOTHAL [Suspect]
     Active Substance: THIOPENTAL SODIUM
     Indication: INDUCTION OF ANAESTHESIA

REACTIONS (24)
  - Blood calcium decreased [None]
  - Wernicke^s encephalopathy [None]
  - Motor dysfunction [None]
  - Haemoglobin decreased [None]
  - Blood glucose increased [None]
  - Respiratory muscle weakness [None]
  - Autonomic nervous system imbalance [None]
  - Blood pH decreased [None]
  - Peripheral sensorimotor neuropathy [None]
  - Lung disorder [None]
  - Delayed recovery from anaesthesia [None]
  - PO2 increased [None]
  - Central nervous system lesion [None]
  - Electroencephalogram abnormal [None]
  - Cardiac disorder [None]
  - Porphyria acute [None]
  - Blood bicarbonate decreased [None]
  - Guillain-Barre syndrome [None]
  - Respiratory failure [None]
  - Hyponatraemia [None]
  - Pneumonia [None]
  - Cerebral disorder [None]
  - Axonal neuropathy [None]
  - Procedural haemorrhage [None]
